FAERS Safety Report 5191930-4 (Version None)
Quarter: 2006Q4

REPORT INFORMATION
  Report Type: 
  Country: None (occurrence: None)
  Receive Date: 20061219
  Receipt Date: 20061212
  Transmission Date: 20070319
  Serious: Yes (Hospitalization)
  Sender: FDA-Public Use
  Company Number: HQWYE938130NOV06

PATIENT
  Age: 43 Year
  Sex: Female

DRUGS (4)
  1. EFFEXOR [Suspect]
     Indication: MAJOR DEPRESSION
     Dosage: SEE IMAGE
     Route: 048
  2. EFFEXOR [Suspect]
     Indication: MAJOR DEPRESSION
     Dosage: SEE IMAGE
     Route: 048
  3. NADOLOL [Concomitant]
  4. FLUPENTIXOL [Suspect]
     Dosage: 4 MG
     Route: 048

REACTIONS (11)
  - AGITATION [None]
  - ALOPECIA [None]
  - ANTIDEPRESSANT DRUG LEVEL INCREASED [None]
  - ANXIETY [None]
  - CONDITION AGGRAVATED [None]
  - DEPRESSION [None]
  - MADAROSIS [None]
  - MUSCLE TIGHTNESS [None]
  - SUICIDE ATTEMPT [None]
  - TREMOR [None]
  - WEIGHT INCREASED [None]
